FAERS Safety Report 17045306 (Version 1)
Quarter: 2019Q4

REPORT INFORMATION
  Report Type: Spontaneous
  Country: US (occurrence: US)
  Receive Date: 20191118
  Receipt Date: 20191118
  Transmission Date: 20200122
  Serious: No
  Sender: FDA-Public Use
  Company Number: US-ENDO PHARMACEUTICALS INC-2019-106680

PATIENT
  Sex: Male

DRUGS (2)
  1. ALPRAZOLAM. [Suspect]
     Active Substance: ALPRAZOLAM
     Dosage: 0.5 DF (ONE HALF TABLET), THREE DIFFERENT TIMES
     Route: 065
  2. ALPRAZOLAM. [Suspect]
     Active Substance: ALPRAZOLAM
     Indication: PRODUCT USED FOR UNKNOWN INDICATION
     Dosage: 0.25 MG, PRN
     Route: 065
     Dates: start: 2019

REACTIONS (6)
  - Somnolence [Unknown]
  - Tremor [Unknown]
  - Product substitution issue [Unknown]
  - Dizziness [Unknown]
  - Intentional product use issue [Unknown]
  - Confusional state [Unknown]

NARRATIVE: CASE EVENT DATE: 2019
